FAERS Safety Report 8283714-5 (Version None)
Quarter: 2012Q2

REPORT INFORMATION
  Report Type: 
  Country: None (occurrence: None)
  Receive Date: 20120413
  Receipt Date: 20120213
  Transmission Date: 20120825
  Serious: No
  Sender: FDA-Public Use
  Company Number: US-ASTRAZENECA-2012SE09562

PATIENT
  Age: 88 Year
  Sex: Female
  Weight: 56.2 kg

DRUGS (6)
  1. CALCIUM CARBONATE [Concomitant]
     Indication: BONE DISORDER
  2. NEXIUM [Suspect]
     Indication: GASTROOESOPHAGEAL REFLUX DISEASE
     Route: 048
  3. BENICAR [Concomitant]
     Indication: BLOOD PRESSURE ABNORMAL
  4. PRILOSEC [Suspect]
     Indication: HIATUS HERNIA
     Dosage: DAILY
     Route: 048
  5. PRILOSEC [Suspect]
     Indication: GASTROOESOPHAGEAL REFLUX DISEASE
     Dosage: DAILY
     Route: 048
  6. NEXIUM [Suspect]
     Indication: HIATUS HERNIA
     Route: 048

REACTIONS (4)
  - ADVERSE DRUG REACTION [None]
  - ARTHRALGIA [None]
  - TOOTHACHE [None]
  - PRURITUS [None]
